FAERS Safety Report 14336601 (Version 2)
Quarter: 2017Q4

REPORT INFORMATION
  Report Type: Spontaneous
  Country: FR (occurrence: FR)
  Receive Date: 20171229
  Receipt Date: 20171229
  Transmission Date: 20180321
  Serious: Yes (Death, Hospitalization, Other)
  Sender: FDA-Public Use
  Company Number: FR-PFIZER INC-2017546699

PATIENT
  Age: 87 Year
  Sex: Female
  Weight: 49 kg

DRUGS (11)
  1. FUROSEMIDE. [Concomitant]
     Active Substance: FUROSEMIDE
     Dosage: 40 MG, UNK
     Route: 048
  2. ACIDE FOLIQUE [Concomitant]
     Active Substance: FOLIC ACID
     Dosage: 15 MG, WEEKLY
     Route: 048
  3. CORDARONE [Suspect]
     Active Substance: AMIODARONE HYDROCHLORIDE
     Indication: ATRIAL FIBRILLATION
     Dosage: 200 MG, QD
     Route: 048
     Dates: start: 20171008
  4. ATENOLOL. [Concomitant]
     Active Substance: ATENOLOL
     Dosage: 50 MG, UNK
     Route: 048
  5. ELIQUIS [Suspect]
     Active Substance: APIXABAN
     Indication: CEREBROVASCULAR ACCIDENT PROPHYLAXIS
     Dosage: 2 TAB, DAILY (1 TAB:2.5 MG)
     Route: 048
     Dates: start: 20171008, end: 20171026
  6. ELIQUIS [Suspect]
     Active Substance: APIXABAN
     Indication: ATRIAL FIBRILLATION
  7. METHOTREXATE. [Concomitant]
     Active Substance: METHOTREXATE
     Dosage: 15 MG, WEEKLY
     Route: 065
     Dates: end: 20171017
  8. AMOXICILLINE PANPHARMA [Suspect]
     Active Substance: AMOXICILLIN
     Indication: ERYSIPELAS
     Dosage: 3 G, QD
     Route: 042
     Dates: start: 20171017, end: 20171024
  9. PANTOPRAZOLE [Concomitant]
     Active Substance: PANTOPRAZOLE
     Dosage: 20 MG, UNK
     Route: 048
  10. PREDNISONE. [Concomitant]
     Active Substance: PREDNISONE
     Dosage: 6 MG, UNK
     Route: 048
  11. POTASSIUM [Concomitant]
     Active Substance: POTASSIUM
     Dosage: 1200 MG, UNK
     Route: 048

REACTIONS (2)
  - Pancytopenia [Fatal]
  - Infection [Fatal]

NARRATIVE: CASE EVENT DATE: 201710
